FAERS Safety Report 25653074 (Version 1)
Quarter: 2025Q3

REPORT INFORMATION
  Report Type: Spontaneous
  Country: CN (occurrence: CN)
  Receive Date: 20250807
  Receipt Date: 20250807
  Transmission Date: 20251021
  Serious: Yes (Other)
  Sender: BOEHRINGER INGELHEIM
  Company Number: CN-BoehringerIngelheim-2025-BI-087475

PATIENT
  Age: 35 Year
  Sex: Female
  Weight: 46.000 kg

DRUGS (2)
  1. COMBIVENT [Suspect]
     Active Substance: ALBUTEROL SULFATE\IPRATROPIUM BROMIDE
     Indication: Pyrexia
     Dates: start: 20250708, end: 20250710
  2. COMBIVENT [Suspect]
     Active Substance: ALBUTEROL SULFATE\IPRATROPIUM BROMIDE
     Indication: Pneumonia

REACTIONS (4)
  - Myopia [Recovered/Resolved]
  - Pupillary reflex impaired [Recovered/Resolved]
  - Mydriasis [Recovered/Resolved]
  - Hyalosis asteroid [Recovered/Resolved]

NARRATIVE: CASE EVENT DATE: 20250710
